FAERS Safety Report 8984811 (Version 1)
Quarter: 2012Q4

REPORT INFORMATION
  Report Type: Report from Study
  Country: DE (occurrence: DE)
  Receive Date: 20121226
  Receipt Date: 20121226
  Transmission Date: 20130627
  Serious: Yes (Death, Hospitalization)
  Sender: FDA-Public Use
  Company Number: PHHO2012DE011961

PATIENT
  Sex: Female
  Weight: 52 kg

DRUGS (3)
  1. AFINITOR [Suspect]
     Indication: THYROID CANCER
     Dosage: 5 mg, UNK
     Route: 048
     Dates: start: 20120712, end: 20120806
  2. AFINITOR [Suspect]
     Dosage: 5 mg, UNK
     Route: 048
     Dates: start: 20120820
  3. DOXORUBICIN [Suspect]
     Indication: THYROID CANCER
     Dosage: 93 mg, UNK
     Dates: start: 20120712

REACTIONS (5)
  - Death [Fatal]
  - Mucosal inflammation [Recovered/Resolved]
  - Weight decreased [Recovered/Resolved]
  - Systemic candida [Recovered/Resolved]
  - Bone lesion [Recovered/Resolved]
